FAERS Safety Report 22616649 (Version 1)
Quarter: 2023Q2

REPORT INFORMATION
  Report Type: Spontaneous
  Country: US (occurrence: US)
  Receive Date: 20230619
  Receipt Date: 20230619
  Transmission Date: 20230721
  Serious: Yes (Other)
  Sender: FDA-Public Use
  Company Number: US-BAYER-2023A084407

PATIENT
  Age: 62 Year
  Sex: Female

DRUGS (2)
  1. KOVALTRY [Suspect]
     Active Substance: ANTIHEMOPHILIC FACTOR, HUMAN RECOMBINANT
     Indication: Factor VIII deficiency
     Dosage: 1500 UNITS  (+/-10%) BREAKTHRU BLEEDING, PRIOR TO INVASIVE  PROCEDURES)
     Route: 042
  2. AZELASTINE HYDROCHLORIDE [Concomitant]
     Active Substance: AZELASTINE HYDROCHLORIDE

REACTIONS (3)
  - Haemorrhage [None]
  - Haemorrhage [None]
  - Road traffic accident [None]

NARRATIVE: CASE EVENT DATE: 20230610
